FAERS Safety Report 13356673 (Version 20)
Quarter: 2018Q2

REPORT INFORMATION
  Report Type: Spontaneous
  Country: US (occurrence: US)
  Receive Date: 20170321
  Receipt Date: 20180425
  Transmission Date: 20180711
  Serious: Yes (Hospitalization, Other)
  Sender: FDA-Public Use
  Company Number: US-ACTELION-A-US2017-151295

PATIENT
  Age: 76 Year
  Sex: Female
  Weight: 65.31 kg

DRUGS (10)
  1. AMBRISENTAN [Suspect]
     Active Substance: AMBRISENTAN
     Indication: PRODUCT USED FOR UNKNOWN INDICATION
     Dosage: 10 MG, QD
     Route: 065
     Dates: start: 20160811
  2. UPTRAVI [Suspect]
     Active Substance: SELEXIPAG
     Indication: PULMONARY ARTERIAL HYPERTENSION
     Dosage: 400 MCG, BID
     Route: 048
  3. UPTRAVI [Suspect]
     Active Substance: SELEXIPAG
     Dosage: 600 MCG, BID
     Route: 048
  4. AMBRISENTAN [Suspect]
     Active Substance: AMBRISENTAN
     Dosage: 5 MG, QD
     Route: 065
  5. LIPITOR [Suspect]
     Active Substance: ATORVASTATIN CALCIUM
     Indication: BLOOD CHOLESTEROL
     Route: 065
  6. UPTRAVI [Suspect]
     Active Substance: SELEXIPAG
     Dosage: 1600 MCG, BID
     Route: 048
     Dates: start: 20170412
  7. ELIQUIS [Concomitant]
     Active Substance: APIXABAN
  8. UPTRAVI [Suspect]
     Active Substance: SELEXIPAG
     Dosage: 800 MCG, BID
     Route: 048
  9. UPTRAVI [Suspect]
     Active Substance: SELEXIPAG
     Dosage: 1400 MCG, BID
     Route: 048
     Dates: start: 20170414
  10. UPTRAVI [Suspect]
     Active Substance: SELEXIPAG
     Dosage: 1200 MCG, UNK
     Route: 048

REACTIONS (49)
  - Deafness [Unknown]
  - Atrial fibrillation [Unknown]
  - Ear pruritus [Unknown]
  - Ear discomfort [Unknown]
  - Muscular weakness [Unknown]
  - Pain in jaw [Unknown]
  - Fatigue [Unknown]
  - Discomfort [Unknown]
  - Gait disturbance [Unknown]
  - Vertigo [Unknown]
  - Bone pain [Unknown]
  - Arthralgia [Unknown]
  - Dyspnoea [Not Recovered/Not Resolved]
  - Cataract operation [Unknown]
  - Dizziness [Unknown]
  - Exostosis [Unknown]
  - Confusional state [Unknown]
  - Pain [Recovering/Resolving]
  - Cardiac discomfort [Unknown]
  - Feeding disorder [Unknown]
  - Insomnia [Unknown]
  - Asthenia [Unknown]
  - Fall [Unknown]
  - Ear pain [Unknown]
  - Balance disorder [Unknown]
  - Increased tendency to bruise [Unknown]
  - Treatment noncompliance [Unknown]
  - Hypoacusis [Unknown]
  - Feeling abnormal [Unknown]
  - Feeling drunk [Unknown]
  - Poor quality sleep [Unknown]
  - Weight increased [Unknown]
  - Oxygen saturation decreased [Unknown]
  - Tinnitus [Unknown]
  - Paranasal sinus hypersecretion [Unknown]
  - Malaise [Not Recovered/Not Resolved]
  - Walking aid user [Not Recovered/Not Resolved]
  - Blood pressure fluctuation [Unknown]
  - Fluid retention [Unknown]
  - Peripheral swelling [Unknown]
  - Pain in extremity [Not Recovered/Not Resolved]
  - Feeling of body temperature change [Unknown]
  - Drug dose omission [Unknown]
  - Ear disorder [Unknown]
  - Myalgia [Unknown]
  - Headache [Unknown]
  - Hot flush [Not Recovered/Not Resolved]
  - Visual impairment [Unknown]
  - Memory impairment [Unknown]

NARRATIVE: CASE EVENT DATE: 201704
